FAERS Safety Report 8429981-6 (Version None)
Quarter: 2012Q2

REPORT INFORMATION
  Report Type: 
  Country: None (occurrence: None)
  Receive Date: 20120612
  Receipt Date: 20120606
  Transmission Date: 20120825
  Serious: Yes (Hospitalization, Other)
  Sender: FDA-Public Use
  Company Number: US-ROCHE-1067726

PATIENT
  Sex: Male
  Weight: 57.658 kg

DRUGS (1)
  1. AVASTIN [Suspect]
     Indication: NON-SMALL CELL LUNG CANCER
     Route: 042
     Dates: start: 20111101, end: 20120218

REACTIONS (3)
  - APPENDICITIS [None]
  - VISUAL IMPAIRMENT [None]
  - APPENDICITIS PERFORATED [None]
